FAERS Safety Report 9772176 (Version 4)
Quarter: 2014Q1

REPORT INFORMATION
  Report Type: Spontaneous
  Country: JP (occurrence: JP)
  Receive Date: 20131219
  Receipt Date: 20140211
  Transmission Date: 20141002
  Serious: Yes (Hospitalization)
  Sender: FDA-Public Use
  Company Number: JP-BRACCO-007638

PATIENT
  Age: 82 Year
  Sex: Female
  Weight: 61 kg

DRUGS (5)
  1. IOPAMIRON [Suspect]
     Indication: COMPUTERISED TOMOGRAM
     Route: 042
     Dates: start: 20131022, end: 20131022
  2. BAYASPIRIN [Suspect]
     Indication: PHLEBITIS
     Route: 048
     Dates: start: 20131023, end: 20131101
  3. HOMEOPATHIC PREPARATION [Concomitant]
  4. ALL OTHER THERAPEUTIC PRODUCTS [Concomitant]
  5. LIVALO [Concomitant]

REACTIONS (1)
  - Toxic skin eruption [Recovered/Resolved]
